FAERS Safety Report 9402863 (Version 2)
Quarter: 2013Q3

REPORT INFORMATION
  Report Type: Spontaneous
  Country: US (occurrence: US)
  Receive Date: 20130716
  Receipt Date: 20130814
  Transmission Date: 20140515
  Serious: Yes (Death, Other)
  Sender: FDA-Public Use
  Company Number: US-PFIZER INC-2013207870

PATIENT
  Age: 26 Year
  Sex: Male
  Weight: 73.02 kg

DRUGS (2)
  1. XANAX [Suspect]
     Dosage: UNK
  2. METHADONE [Suspect]
     Dosage: UNK

REACTIONS (13)
  - Overdose [Fatal]
  - Toxicity to various agents [Fatal]
  - Loss of consciousness [Unknown]
  - Brain oedema [Unknown]
  - Bronchopneumonia [Unknown]
  - Pulmonary oedema [Unknown]
  - Arteriosclerosis coronary artery [Unknown]
  - Mitral valve disease [Unknown]
  - Scratch [Unknown]
  - Scab [Unknown]
  - Hepatic steatosis [Unknown]
  - Liver disorder [Unknown]
  - Incorrect route of drug administration [Unknown]
